FAERS Safety Report 21476849 (Version 1)
Quarter: 2022Q4

REPORT INFORMATION
  Report Type: Spontaneous
  Country: US (occurrence: None)
  Receive Date: 20221018
  Receipt Date: 20221018
  Transmission Date: 20230113
  Serious: No
  Sender: FDA-Public Use
  Company Number: None

PATIENT
  Age: 35 Year
  Sex: Female
  Weight: 51.26 kg

DRUGS (1)
  1. DULOXETINE HYDROCHLORIDE [Suspect]
     Active Substance: DULOXETINE HYDROCHLORIDE
     Indication: Pain
     Dosage: 2 CAPS PO QDAY UNITS EVERY DAY PO
     Route: 048
     Dates: start: 20210802, end: 20220216

REACTIONS (5)
  - Psychotic disorder [None]
  - Agitation [None]
  - Hallucination [None]
  - Aggression [None]
  - Visual impairment [None]
